FAERS Safety Report 5945743-3 (Version None)
Quarter: 2008Q4

REPORT INFORMATION
  Report Type: 
  Country: None (occurrence: None)
  Receive Date: 20081105
  Receipt Date: 20081029
  Transmission Date: 20090506
  Serious: No
  Sender: FDA-Public Use
  Company Number: 2008JP003159

PATIENT
  Age: 11 Year
  Sex: Female

DRUGS (1)
  1. PROTOPIC [Suspect]
     Indication: DERMATITIS ATOPIC
     Dosage: 0.03%, TROPICAL
     Route: 061
     Dates: start: 20060317

REACTIONS (1)
  - SKIN PAPILLOMA [None]
